FAERS Safety Report 20558296 (Version 1)
Quarter: 2022Q1

REPORT INFORMATION
  Report Type: Spontaneous
  Country: US (occurrence: US)
  Receive Date: 20220307
  Receipt Date: 20220307
  Transmission Date: 20220424
  Serious: No
  Sender: FDA-Public Use
  Company Number: US-SA-SAC20220304000939

PATIENT
  Age: 80 Year
  Sex: Female

DRUGS (24)
  1. DUPIXENT [Suspect]
     Active Substance: DUPILUMAB
     Indication: Dermatitis atopic
     Dosage: 300 MG, QOW
     Route: 058
     Dates: start: 201912
  2. MACROBID [Concomitant]
     Active Substance: NITROFURANTOIN\NITROFURANTOIN MONOHYDRATE
  3. CULTURELLE [Concomitant]
     Active Substance: LACTOBACILLUS RHAMNOSUS
  4. COVID-19 VACCINE [Concomitant]
     Indication: Immunisation
  5. DULOXETINE HYDROCHLORIDE [Concomitant]
     Active Substance: DULOXETINE HYDROCHLORIDE
  6. DOXAZOSIN MESYLATE [Concomitant]
     Active Substance: DOXAZOSIN MESYLATE
  7. CITRUCEL [Concomitant]
     Active Substance: METHYLCELLULOSE (4000 MPA.S)
  8. SYSTANE (HYPROMELLOSE 2910 (4000 MPA.S)) [Concomitant]
     Active Substance: HYPROMELLOSE 2910 (4000 MPA.S)
  9. TRIAMCINOLONE ACETONIDE [Concomitant]
     Active Substance: TRIAMCINOLONE ACETONIDE
  10. QUETIAPINE FUMARATE [Concomitant]
     Active Substance: QUETIAPINE FUMARATE
  11. PREDNISOLONE [Concomitant]
     Active Substance: PREDNISOLONE
  12. PRAVASTATIN SODIUM [Concomitant]
     Active Substance: PRAVASTATIN SODIUM
  13. PENTOXIFYLLINE [Concomitant]
     Active Substance: PENTOXIFYLLINE
  14. MYRBETRIQ [Concomitant]
     Active Substance: MIRABEGRON
  15. MIRALAX [Concomitant]
     Active Substance: POLYETHYLENE GLYCOL 3350
  16. LAMOTRIGINE [Concomitant]
     Active Substance: LAMOTRIGINE
  17. ISOSORBIDE MONONITRATE [Concomitant]
     Active Substance: ISOSORBIDE MONONITRATE
  18. GABAPENTIN [Concomitant]
     Active Substance: GABAPENTIN
  19. CARVEDILOL [Concomitant]
     Active Substance: CARVEDILOL
  20. BUSPIRONE HCL [Concomitant]
     Active Substance: BUSPIRONE HYDROCHLORIDE
  21. ALLEGRA ALLERGY [Concomitant]
     Active Substance: FEXOFENADINE HYDROCHLORIDE
  22. VOTRIENT [Concomitant]
     Active Substance: PAZOPANIB HYDROCHLORIDE
  23. ARICEPT [Concomitant]
     Active Substance: DONEPEZIL HYDROCHLORIDE
  24. PREBIOTICS NOS;PROBIOTICS NOS [Concomitant]

REACTIONS (2)
  - Urinary tract infection [Unknown]
  - Surgery [Unknown]

NARRATIVE: CASE EVENT DATE: 20220228
